FAERS Safety Report 6223518-8 (Version None)
Quarter: 2009Q2

REPORT INFORMATION
  Report Type: 
  Country: None (occurrence: None)
  Receive Date: 20090611
  Receipt Date: 20090602
  Transmission Date: 20091009
  Serious: Yes (Life-Threatening, Hospitalization, Other)
  Sender: FDA-Public Use
  Company Number: JP-GILEAD-2009-0022422

PATIENT
  Sex: Male

DRUGS (13)
  1. VIREAD [Suspect]
     Indication: HEPATITIS B
     Route: 048
     Dates: start: 20090213
  2. HEPSERA [Suspect]
     Indication: HEPATITIS B VIRUS TEST
     Dates: start: 20090116
  3. BARACLUDE [Suspect]
     Indication: HEPATITIS B
     Route: 048
     Dates: start: 20081212, end: 20090403
  4. GASTER D [Suspect]
     Indication: GASTRITIS
     Route: 048
     Dates: start: 20081128, end: 20090403
  5. VITAMEDIN [Concomitant]
     Dates: start: 20081201, end: 20090507
  6. KAYTWO [Concomitant]
     Dates: start: 20081127, end: 20090507
  7. ADELAVIN-NO.9 [Concomitant]
     Dates: start: 20081127, end: 20090507
  8. TAURINE [Concomitant]
     Dates: start: 20081201, end: 20090403
  9. NEO-MINOPHAGEN C [Concomitant]
     Dates: start: 20081205
  10. URSO 250 [Concomitant]
     Dates: start: 20081226, end: 20090403
  11. PREDONINE [Concomitant]
     Dates: start: 20090206
  12. KANAMYCIN [Concomitant]
     Dates: start: 20090216, end: 20090401
  13. LASIX [Concomitant]

REACTIONS (2)
  - GRANULOCYTOPENIA [None]
  - STEVENS-JOHNSON SYNDROME [None]
